FAERS Safety Report 10415177 (Version 3)
Quarter: 2015Q2

REPORT INFORMATION
  Report Type: Spontaneous
  Country: US (occurrence: US)
  Receive Date: 20140828
  Receipt Date: 20150626
  Transmission Date: 20150821
  Serious: Yes (Other)
  Sender: FDA-Public Use
  Company Number: US-UCBSA-2014000869

PATIENT
  Sex: Female

DRUGS (3)
  1. METHYLPHENIDATE [Concomitant]
     Active Substance: METHYLPHENIDATE
  2. KU-METHYLPHENIDATE HYDROCHLORIDE [Suspect]
     Active Substance: METHYLPHENIDATE HYDROCHLORIDE
     Dosage: 54 MG, ONCE DAILY (QD)
  3. CONCERTA [Concomitant]
     Active Substance: METHYLPHENIDATE HYDROCHLORIDE

REACTIONS (2)
  - Drug ineffective [Unknown]
  - Depression [Recovered/Resolved]
